FAERS Safety Report 10049816 (Version 1)
Quarter: 2014Q2

REPORT INFORMATION
  Report Type: Spontaneous
  Country: KR (occurrence: KR)
  Receive Date: 20140401
  Receipt Date: 20140401
  Transmission Date: 20141212
  Serious: Yes (Death, Hospitalization)
  Sender: FDA-Public Use
  Company Number: KR-MYLANLABS-2014S1006528

PATIENT
  Age: 64 Year
  Sex: Male

DRUGS (4)
  1. TRETINOIN [Suspect]
     Indication: ACUTE PROMYELOCYTIC LEUKAEMIA
     Dosage: 45 MG/M2
     Route: 065
  2. TRETINOIN [Suspect]
     Indication: OFF LABEL USE
     Dosage: 45 MG/M2
     Route: 065
  3. IDARUBICIN [Concomitant]
     Indication: ACUTE PROMYELOCYTIC LEUKAEMIA
     Dosage: 12MG/M2/D
     Route: 065
  4. CYTARABINE [Concomitant]
     Indication: ACUTE PROMYELOCYTIC LEUKAEMIA
     Dosage: 100 MG/M2/D
     Route: 065

REACTIONS (2)
  - Retinoic acid syndrome [Fatal]
  - Myositis [Unknown]
